FAERS Safety Report 5228851-4 (Version None)
Quarter: 2007Q1

REPORT INFORMATION
  Report Type: 
  Country: None (occurrence: None)
  Receive Date: 20070205
  Receipt Date: 20070129
  Transmission Date: 20070707
  Serious: Yes (Death, Other)
  Sender: FDA-Public Use
  Company Number: PT-BRISTOL-MYERS SQUIBB COMPANY-13665450

PATIENT
  Age: 44 Year
  Sex: Male

DRUGS (1)
  1. DASATINIB [Suspect]

REACTIONS (2)
  - DEATH [None]
  - PNEUMONIA [None]
